FAERS Safety Report 6902806-3 (Version None)
Quarter: 2010Q3

REPORT INFORMATION
  Report Type: 
  Country: None (occurrence: None)
  Receive Date: 20100803
  Receipt Date: 20080815
  Transmission Date: 20110219
  Serious: Yes (Other)
  Sender: FDA-Public Use
  Company Number: US-PFIZER INC-2008068973

PATIENT
  Sex: Male
  Weight: 86.6 kg

DRUGS (8)
  1. LYRICA [Suspect]
     Indication: RADICULOPATHY
     Dates: start: 20080814, end: 20080815
  2. LYRICA [Suspect]
     Indication: SPINAL DISORDER
  3. LYRICA [Suspect]
     Indication: PARAESTHESIA
  4. LYRICA [Suspect]
     Indication: HYPOAESTHESIA
  5. BUPROPION [Concomitant]
     Indication: DEPRESSION
  6. REMERON [Concomitant]
     Indication: SLEEP DISORDER
  7. CLONAZEPAM [Concomitant]
     Indication: SLEEP DISORDER
  8. OMEPRAZOLE [Concomitant]

REACTIONS (4)
  - DIZZINESS [None]
  - HEADACHE [None]
  - OEDEMA MOUTH [None]
  - PHARYNGEAL OEDEMA [None]
